FAERS Safety Report 16122460 (Version 2)
Quarter: 2019Q3

REPORT INFORMATION
  Report Type: Spontaneous
  Country: US (occurrence: US)
  Receive Date: 20190327
  Receipt Date: 20190806
  Transmission Date: 20191004
  Serious: No
  Sender: FDA-Public Use
  Company Number: US-PHARMING-PHAUS2019000209

PATIENT

DRUGS (2)
  1. RUCONEST [Suspect]
     Active Substance: HUMAN C1-ESTERASE INHIBITOR
     Indication: HEREDITARY ANGIOEDEMA
     Dosage: 2600 IU, EVERY 2 DAYS
     Route: 042
     Dates: start: 20181206
  2. RUCONEST [Suspect]
     Active Substance: HUMAN C1-ESTERASE INHIBITOR
     Dosage: 2600 IU, EVERY 2 DAYS
     Route: 042
     Dates: start: 20190306

REACTIONS (3)
  - Intentional dose omission [Unknown]
  - Insurance issue [Unknown]
  - Intentional product use issue [Unknown]
